FAERS Safety Report 17819843 (Version 1)
Quarter: 2020Q2

REPORT INFORMATION
  Report Type: Spontaneous
  Country: US (occurrence: US)
  Receive Date: 20200524
  Receipt Date: 20200524
  Transmission Date: 20200714
  Serious: Yes (Other)
  Sender: FDA-Public Use
  Company Number: US-NOVOPROD-728825

PATIENT
  Age: 44 Year
  Sex: Female

DRUGS (1)
  1. NOVOLOG [Suspect]
     Active Substance: INSULIN ASPART
     Indication: TYPE 1 DIABETES MELLITUS
     Dosage: UNK
     Route: 058

REACTIONS (7)
  - Trigger finger [Recovered/Resolved]
  - Metastases to lymph nodes [Recovered/Resolved]
  - Carpal tunnel syndrome [Recovering/Resolving]
  - Mitral valve prolapse [Not Recovered/Not Resolved]
  - Diabetes mellitus inadequate control [Unknown]
  - Syncope [Unknown]
  - Breast cancer [Recovered/Resolved]

NARRATIVE: CASE EVENT DATE: 2004
